FAERS Safety Report 4933067-2 (Version None)
Quarter: 2006Q1

REPORT INFORMATION
  Report Type: 
  Country: None (occurrence: None)
  Receive Date: 20060302
  Receipt Date: 20060302
  Transmission Date: 20060701
  Serious: No
  Sender: FDA-Public Use
  Company Number: None

PATIENT
  Age: 37 Year
  Sex: Female
  Weight: 78.0187 kg

DRUGS (3)
  1. SEROQUEL [Suspect]
     Indication: BIPOLAR DISORDER
     Dates: start: 20041102, end: 20050610
  2. RISPERDAL [Suspect]
     Indication: BIPOLAR DISORDER
     Dates: start: 20041001
  3. RISPERDAL [Suspect]
     Indication: BIPOLAR DISORDER
     Dates: start: 20050701

REACTIONS (9)
  - DIABETES INSIPIDUS [None]
  - DYSPNOEA [None]
  - HYPERPROLACTINAEMIA [None]
  - LETHARGY [None]
  - MALAISE [None]
  - PITTING OEDEMA [None]
  - PITUITARY TUMOUR [None]
  - VISUAL FIELD DEFECT [None]
  - WEIGHT INCREASED [None]
